FAERS Safety Report 9412082 (Version 1)
Quarter: 2013Q2

REPORT INFORMATION
  Report Type: Spontaneous
  Country: US (occurrence: None)
  Receive Date: 20130410
  Receipt Date: 20130410
  Transmission Date: 20140414
  Serious: Yes (Hospitalization, Other)
  Sender: FDA-Public Use
  Company Number: ACO_34916_2013

PATIENT
  Sex: Female

DRUGS (3)
  1. AMPYRA (DALFAMPRIDINE) TABLET, 10MG [Suspect]
     Indication: PRODUCT USED FOR UNKNOWN INDICATION
  2. CORDARONE (AMIODARONE HYDROCHLORIDE)/ORAL/TABLET/200 MILLIGRAMS(S) [Suspect]
     Indication: PRODUCT USED FOR UNKNOWN INDICATION
  3. AVONEX (INTERFERON BETA-1A) [Concomitant]

REACTIONS (6)
  - Renal impairment [None]
  - Spinal column injury [None]
  - Depression [None]
  - Influenza like illness [None]
  - Pain [None]
  - Amnesia [None]
